FAERS Safety Report 20068425 (Version 4)
Quarter: 2022Q1

REPORT INFORMATION
  Report Type: Report from Study
  Country: US (occurrence: US)
  Receive Date: 20211115
  Receipt Date: 20220124
  Transmission Date: 20220424
  Serious: No
  Sender: FDA-Public Use
  Company Number: US-ALKERMES INC.-ALK-2021-005892

PATIENT
  Age: 36 Year
  Sex: Male

DRUGS (4)
  1. VIVITROL [Suspect]
     Active Substance: NALTREXONE
     Indication: Drug use disorder
     Dosage: DRUG NEVER ADMINISTERED
     Route: 030
  2. BUPRENORPHINE [Suspect]
     Active Substance: BUPRENORPHINE
     Indication: Drug use disorder
     Dosage: UNK
     Route: 060
  3. NALTREXONE [Suspect]
     Active Substance: NALTREXONE
     Indication: Drug use disorder
     Dosage: UNK UNK, ONE TIME DOSE
     Route: 048
     Dates: start: 20211029, end: 20211029
  4. CLONAZEPAM [Concomitant]
     Active Substance: CLONAZEPAM
     Indication: Product used for unknown indication
     Dosage: 1.0 MILLIGRAM, TID
     Route: 048
     Dates: start: 20211101

REACTIONS (1)
  - Overdose [Recovered/Resolved]

NARRATIVE: CASE EVENT DATE: 20211101
